FAERS Safety Report 9055246 (Version 3)
Quarter: 2013Q2

REPORT INFORMATION
  Report Type: Spontaneous
  Country: GB (occurrence: GB)
  Receive Date: 20130206
  Receipt Date: 20130409
  Transmission Date: 20140414
  Serious: Yes (Hospitalization)
  Sender: FDA-Public Use
  Company Number: PHFR2013GB001019

PATIENT
  Age: 49 Year
  Sex: Male

DRUGS (1)
  1. CLOZARIL [Suspect]
     Indication: SCHIZOPHRENIA
     Dosage: 500 MG,
     Route: 048
     Dates: start: 20010701

REACTIONS (3)
  - Renal neoplasm [Not Recovered/Not Resolved]
  - Haematuria [Not Recovered/Not Resolved]
  - Body mass index increased [Unknown]
